FAERS Safety Report 7925880-4 (Version None)
Quarter: 2011Q4

REPORT INFORMATION
  Report Type: 
  Country: None (occurrence: None)
  Receive Date: 20111118
  Receipt Date: 20110414
  Transmission Date: 20120403
  Serious: No
  Sender: FDA-Public Use
  Company Number: US-AMGEN-USASP2011019954

PATIENT
  Sex: Female

DRUGS (1)
  1. ENBREL [Suspect]
     Indication: RHEUMATOID ARTHRITIS
     Route: 058
     Dates: start: 20110209

REACTIONS (6)
  - URTICARIA [None]
  - MUSCULOSKELETAL STIFFNESS [None]
  - FINGER DEFORMITY [None]
  - PRURITUS [None]
  - ARTHRALGIA [None]
  - PAIN IN EXTREMITY [None]
